FAERS Safety Report 21182362 (Version 1)
Quarter: 2022Q3

REPORT INFORMATION
  Report Type: Spontaneous
  Country: FR (occurrence: FR)
  Receive Date: 20220807
  Receipt Date: 20220807
  Transmission Date: 20221027
  Serious: Yes (Other)
  Sender: FDA-Public Use
  Company Number: FR-CELGENE-FRA-20220203536

PATIENT
  Age: 76 Year
  Sex: Male

DRUGS (1)
  1. AZACITIDINE [Suspect]
     Active Substance: AZACITIDINE
     Indication: Acute myelomonocytic leukaemia
     Dosage: FREQUENCY TEXT: FOR 7 DAYS
     Route: 058
     Dates: start: 201706

REACTIONS (4)
  - Febrile bone marrow aplasia [Unknown]
  - Infected skin ulcer [Unknown]
  - Bacteraemia [Unknown]
  - Bacterial infection [Unknown]
